FAERS Safety Report 12295637 (Version 1)
Quarter: 2016Q2

REPORT INFORMATION
  Report Type: Spontaneous
  Country: IT (occurrence: IT)
  Receive Date: 20160422
  Receipt Date: 20160422
  Transmission Date: 20160815
  Serious: Yes (Hospitalization)
  Sender: FDA-Public Use
  Company Number: IT-TEVA-653750ACC

PATIENT
  Age: 66 Year
  Sex: Female

DRUGS (3)
  1. XANAX [Suspect]
     Active Substance: ALPRAZOLAM
     Indication: DRUG ABUSE
     Dosage: 60 DF TOTAL
     Route: 048
     Dates: start: 20160129, end: 20160129
  2. ESCITALOPRAM [Suspect]
     Active Substance: ESCITALOPRAM OXALATE
     Indication: DRUG ABUSE
     Dosage: 28 DF TOTAL
     Route: 048
     Dates: start: 20160129, end: 20160129
  3. NEURONTIN [Concomitant]
     Active Substance: GABAPENTIN
     Indication: PRODUCT USED FOR UNKNOWN INDICATION
     Route: 048

REACTIONS (4)
  - Toxicity to various agents [Unknown]
  - Hypokinesia [Unknown]
  - Drug abuse [Unknown]
  - Speech disorder [Unknown]

NARRATIVE: CASE EVENT DATE: 20160129
